FAERS Safety Report 20473797 (Version 1)
Quarter: 2022Q1

REPORT INFORMATION
  Report Type: Spontaneous
  Country: US (occurrence: None)
  Receive Date: 20220214
  Receipt Date: 20220214
  Transmission Date: 20220424
  Serious: Yes (Hospitalization)
  Sender: FDA-Public Use
  Company Number: None

PATIENT
  Age: 39 Year
  Sex: Male

DRUGS (1)
  1. RIVAROXABAN [Suspect]
     Active Substance: RIVAROXABAN
     Indication: Pulmonary embolism
     Dosage: 20 MG EVERY DAY
     Dates: start: 20211206

REACTIONS (6)
  - Diarrhoea [None]
  - Diarrhoea haemorrhagic [None]
  - Abdominal discomfort [None]
  - Pseudomembranous colitis [None]
  - Klebsiella test positive [None]
  - Colitis ischaemic [None]

NARRATIVE: CASE EVENT DATE: 20211206
